FAERS Safety Report 6497490-X (Version None)
Quarter: 2009Q4

REPORT INFORMATION
  Report Type: 
  Country: None (occurrence: None)
  Receive Date: 20091215
  Receipt Date: 20091202
  Transmission Date: 20100525
  Serious: Yes (Hospitalization)
  Sender: FDA-Public Use
  Company Number: ES-ELI_LILLY_AND_COMPANY-ES200912001072

PATIENT
  Age: 67 Year
  Sex: Male

DRUGS (11)
  1. FORTEO [Suspect]
     Indication: OSTEOPOROSIS
     Dosage: 20 UG, UNKNOWN
     Route: 058
     Dates: start: 20091112
  2. CARDURA [Concomitant]
     Dosage: UNK, UNKNOWN
     Route: 065
  3. COAPROVEL [Concomitant]
     Dosage: UNK, UNKNOWN
     Route: 065
  4. ADIRO [Concomitant]
     Dosage: UNK, UNKNOWN
     Route: 065
  5. PRAREDUCT [Concomitant]
     Dosage: UNK, UNKNOWN
     Route: 065
  6. SPIRIVA [Concomitant]
     Dosage: UNK, UNKNOWN
     Route: 065
  7. PENTOXYFYLLIN [Concomitant]
     Dosage: UNK, UNKNOWN
     Route: 065
  8. ACETILCISTEINA [Concomitant]
     Dosage: UNK, UNKNOWN
     Route: 065
  9. OMEPRAZOLE [Concomitant]
     Dosage: UNK, UNKNOWN
     Route: 065
  10. URBASON /00049601/ [Concomitant]
     Dosage: UNK, UNKNOWN
     Route: 065
  11. SEGURIL [Concomitant]
     Dosage: UNK, UNKNOWN
     Route: 065

REACTIONS (2)
  - PNEUMONIA [None]
  - RESPIRATORY FAILURE [None]
